FAERS Safety Report 8863177 (Version 1)
Quarter: 2012Q4

REPORT INFORMATION
  Report Type: 
  Country: BE (occurrence: BE)
  Receive Date: 20121026
  Receipt Date: 20121026
  Transmission Date: 20130627
  Serious: Yes (Hospitalization, Other)
  Sender: FDA-Public Use
  Company Number: BE-ROCHE-1131207

PATIENT
  Sex: Female

DRUGS (2)
  1. BEVACIZUMAB [Suspect]
     Indication: BREAST CANCER METASTATIC
     Route: 065
  2. PACLITAXEL [Suspect]
     Indication: BREAST CANCER METASTATIC
     Route: 065

REACTIONS (7)
  - Neurotoxicity [Unknown]
  - Disease progression [Unknown]
  - Nail disorder [Unknown]
  - Skin ulcer [Unknown]
  - Liver function test abnormal [Unknown]
  - Anal infection [Unknown]
  - Jaundice [Unknown]
